FAERS Safety Report 15232234 (Version 2)
Quarter: 2019Q2

REPORT INFORMATION
  Report Type: Spontaneous
  Country: US (occurrence: US)
  Receive Date: 20180802
  Receipt Date: 20190424
  Transmission Date: 20190711
  Serious: Yes (Hospitalization, Other)
  Sender: FDA-Public Use
  Company Number: US-PFIZER INC-2018258601

PATIENT
  Age: 56 Year
  Sex: Female

DRUGS (1)
  1. TORISEL [Suspect]
     Active Substance: TEMSIROLIMUS
     Indication: CERVIX CARCINOMA
     Dosage: UNK

REACTIONS (10)
  - Alopecia [Unknown]
  - Loss of consciousness [Unknown]
  - Malaise [Unknown]
  - Hepatic enzyme decreased [Unknown]
  - Product use in unapproved indication [Unknown]
  - Neoplasm progression [Unknown]
  - Dyspnoea [Unknown]
  - Pneumonia [Recovered/Resolved]
  - Eating disorder [Unknown]
  - Oral pain [Recovered/Resolved]
